FAERS Safety Report 6626377-4 (Version None)
Quarter: 2010Q1

REPORT INFORMATION
  Report Type: 
  Country: None (occurrence: None)
  Receive Date: 20100310
  Receipt Date: 20090609
  Transmission Date: 20100710
  Serious: No
  Sender: FDA-Public Use
  Company Number: US-ABBOTT-09P-163-0579404-00

PATIENT
  Sex: Female
  Weight: 63.106 kg

DRUGS (3)
  1. LUPRON DEPOT [Suspect]
     Indication: ENDOMETRIOSIS
     Route: 050
     Dates: start: 20090403
  2. LUPRON DEPOT [Suspect]
     Indication: ENDOMETRIOSIS
     Route: 050
     Dates: start: 20090306, end: 20090306
  3. AYGESTIN [Concomitant]
     Indication: ENDOMETRIOSIS
     Route: 048

REACTIONS (2)
  - METRORRHAGIA [None]
  - THYROID DISORDER [None]
